FAERS Safety Report 4770176-5 (Version None)
Quarter: 2005Q3

REPORT INFORMATION
  Report Type: 
  Country: None (occurrence: None)
  Receive Date: 20050915
  Receipt Date: 20050130
  Transmission Date: 20060218
  Serious: No
  Sender: FDA-Public Use
  Company Number: US-GLAXOSMITHKLINE-A0542962A

PATIENT
  Age: 50 Year
  Sex: Female

DRUGS (1)
  1. ABREVA [Suspect]

REACTIONS (7)
  - APPLICATION SITE PAIN [None]
  - APPLICATION SITE PARAESTHESIA [None]
  - APPLICATION SITE PRURITUS [None]
  - BURNING SENSATION [None]
  - DYSARTHRIA [None]
  - ORAL PAIN [None]
  - SWELLING FACE [None]
